FAERS Safety Report 8419701-3 (Version None)
Quarter: 2012Q2

REPORT INFORMATION
  Report Type: 
  Country: None (occurrence: None)
  Receive Date: 20120604
  Receipt Date: 20120604
  Transmission Date: 20120825
  Serious: Yes (Other)
  Sender: FDA-Public Use
  Company Number: None

PATIENT
  Age: 27 Year
  Sex: Female
  Weight: 74.8435 kg

DRUGS (1)
  1. AVELOX [Suspect]
     Indication: CHRONIC SINUSITIS
     Dosage: 400 MG TAB QD PO
     Route: 048
     Dates: start: 20120531, end: 20120601

REACTIONS (6)
  - COLD SWEAT [None]
  - FEAR [None]
  - PANIC REACTION [None]
  - NAUSEA [None]
  - NIGHTMARE [None]
  - ANGER [None]
